FAERS Safety Report 4450723-3 (Version None)
Quarter: 2004Q3

REPORT INFORMATION
  Report Type: 
  Country: None (occurrence: None)
  Receive Date: 20040914
  Receipt Date: 20040914
  Transmission Date: 20050211
  Serious: Yes (Other)
  Sender: FDA-Public Use
  Company Number: None

PATIENT
  Sex: Male
  Weight: 63.5036 kg

DRUGS (4)
  1. LISINOPRIL [Suspect]
     Indication: HYPERTENSION
     Dosage: 10 MG PO QD
     Route: 048
     Dates: start: 20031027
  2. LISINOPRIL [Suspect]
     Indication: HYPERTENSION
     Dosage: 10 MG PO QD
     Route: 048
     Dates: start: 20031028
  3. VERAPAMIL [Concomitant]
  4. ACTOS [Concomitant]

REACTIONS (3)
  - BURNING SENSATION [None]
  - FATIGUE [None]
  - PHARMACEUTICAL PRODUCT COMPLAINT [None]
